FAERS Safety Report 7019947-5 (Version None)
Quarter: 2010Q3

REPORT INFORMATION
  Report Type: 
  Country: None (occurrence: None)
  Receive Date: 20100929
  Receipt Date: 20100922
  Transmission Date: 20110219
  Serious: Yes (Hospitalization, Other)
  Sender: FDA-Public Use
  Company Number: CA-BAYER-200915663NA

PATIENT
  Age: 39 Year
  Sex: Female
  Weight: 63 kg

DRUGS (10)
  1. BETASERON [Suspect]
     Indication: SECONDARY PROGRESSIVE MULTIPLE SCLEROSIS
     Route: 058
  2. BETASERON [Suspect]
     Dosage: TOTAL DAILY DOSE: 8 MIU
     Route: 058
     Dates: start: 20040330
  3. BETASERON [Suspect]
     Dosage: TOTAL DAILY DOSE: 8 MIU
     Route: 058
  4. NOVOGESIC [Concomitant]
     Indication: PAIN
  5. NEURONTIN [Concomitant]
     Indication: NEURALGIA
  6. ELAVIL [Concomitant]
     Indication: DEPRESSION
  7. MELOXICAM [Concomitant]
     Indication: ANTIINFLAMMATORY THERAPY
  8. PMS-ERYTHROMYCIN [Concomitant]
     Indication: INFECTION
     Dates: start: 20080908
  9. ATENOLOL [Concomitant]
     Indication: HEART RATE INCREASED
     Dates: start: 20090601
  10. CORTISONE [Concomitant]
     Route: 042
     Dates: start: 20090701

REACTIONS (19)
  - ASTHENIA [None]
  - BLINDNESS UNILATERAL [None]
  - COGNITIVE DISORDER [None]
  - CONTUSION [None]
  - DIZZINESS [None]
  - FALL [None]
  - FATIGUE [None]
  - HAEMATEMESIS [None]
  - HEADACHE [None]
  - HEART RATE INCREASED [None]
  - HYPERTENSION [None]
  - LOSS OF CONSCIOUSNESS [None]
  - MALAISE [None]
  - MENTAL IMPAIRMENT [None]
  - MULTIPLE SCLEROSIS RELAPSE [None]
  - OEDEMA PERIPHERAL [None]
  - OPTIC NEURITIS [None]
  - VISUAL IMPAIRMENT [None]
  - VOMITING [None]
